FAERS Safety Report 16767829 (Version 2)
Quarter: 2019Q3

REPORT INFORMATION
  Report Type: Spontaneous
  Country: PT (occurrence: PT)
  Receive Date: 20190903
  Receipt Date: 20190927
  Transmission Date: 20191005
  Serious: Yes (Hospitalization, Other)
  Sender: FDA-Public Use
  Company Number: PT-MYLANLABS-2019M1081772

PATIENT
  Age: 69 Year
  Sex: Female

DRUGS (3)
  1. DAPAGLIFLOZIN. [Suspect]
     Active Substance: DAPAGLIFLOZIN
     Indication: DIABETIC METABOLIC DECOMPENSATION
     Dosage: 10MG/DAY
  2. FUROSEMIDA                         /00032601/ [Suspect]
     Active Substance: FUROSEMIDE
     Indication: DIABETIC METABOLIC DECOMPENSATION
     Dosage: 40 MILLIGRAM, QD
  3. METFORMIN [Suspect]
     Active Substance: METFORMIN HYDROCHLORIDE
     Indication: PRODUCT USED FOR UNKNOWN INDICATION
     Dosage: 1700 MG/DAY

REACTIONS (9)
  - Fatigue [Unknown]
  - Metabolic acidosis [Unknown]
  - Hypernatraemia [Unknown]
  - Dehydration [Unknown]
  - Diabetic ketoacidosis [Unknown]
  - Urine ketone body present [Unknown]
  - Diabetic metabolic decompensation [Unknown]
  - Acute kidney injury [Unknown]
  - Food refusal [Unknown]
